FAERS Safety Report 8428060-1 (Version None)
Quarter: 2012Q2

REPORT INFORMATION
  Report Type: 
  Country: None (occurrence: None)
  Receive Date: 20120611
  Receipt Date: 20120605
  Transmission Date: 20120825
  Serious: Yes (Death, Life-Threatening, Other)
  Sender: FDA-Public Use
  Company Number: CN-ASTRAZENECA-2012SE37310

PATIENT
  Age: 78 Year
  Sex: Male

DRUGS (4)
  1. NEXIUM [Suspect]
     Indication: HYPERCHLORHYDRIA
     Route: 042
     Dates: start: 20120508, end: 20120508
  2. TAZOBACTAM [Concomitant]
     Indication: INFECTION PROPHYLAXIS
     Route: 042
     Dates: start: 20120508, end: 20120508
  3. NACL SOLUTION [Concomitant]
     Indication: MEDICATION DILUTION
     Dosage: 0.9 % NACL 100 ML, TWO TIMES A DAY
     Route: 042
     Dates: start: 20120508, end: 20120508
  4. CEFTRIAXONE SODIUM [Concomitant]
     Indication: INFECTION PROPHYLAXIS
     Route: 042
     Dates: start: 20120508, end: 20120508

REACTIONS (1)
  - ANAPHYLACTIC SHOCK [None]
